FAERS Safety Report 8760765 (Version 1)
Quarter: 2012Q4

REPORT INFORMATION
  Report Type: 
  Country: US (occurrence: US)
  Receive Date: 20120830
  Receipt Date: 20120830
  Transmission Date: 20130627
  Serious: Yes (Death)
  Sender: FDA-Public Use
  Company Number: US-CELGENEUS-163-20785-12082966

PATIENT
  Age: 53 Year
  Sex: Male

DRUGS (2)
  1. THALOMID [Suspect]
     Indication: MALIGNANT NEOPLASM OF PROSTATE
     Dosage: 50 Milligram
     Route: 048
     Dates: start: 201205
  2. REVLIMID [Suspect]
     Indication: MALIGNANT NEOPLASM OF PROSTATE
     Dosage: 5 Milligram
     Route: 048
     Dates: start: 201205

REACTIONS (1)
  - Death [Fatal]
